FAERS Safety Report 6992184-6 (Version None)
Quarter: 2010Q3

REPORT INFORMATION
  Report Type: 
  Country: None (occurrence: None)
  Receive Date: 20100917
  Receipt Date: 20100827
  Transmission Date: 20110219
  Serious: No
  Sender: FDA-Public Use
  Company Number: A0873761A

PATIENT
  Age: 83 Year
  Sex: Female

DRUGS (4)
  1. PROMACTA [Suspect]
     Dosage: 1TAB PER DAY
     Route: 048
     Dates: start: 20091001
  2. COZAAR [Concomitant]
  3. LOSARTAN POTASSIUM [Concomitant]
  4. VITAMIN D [Concomitant]

REACTIONS (2)
  - DYSURIA [None]
  - MICTURITION DISORDER [None]
